FAERS Safety Report 5300754-6 (Version None)
Quarter: 2007Q2

REPORT INFORMATION
  Report Type: 
  Country: None (occurrence: None)
  Receive Date: 20070418
  Receipt Date: 20070312
  Transmission Date: 20071010
  Serious: Yes (Other)
  Sender: FDA-Public Use
  Company Number: US-SANOFI-SYNTHELABO-A03200702267

PATIENT
  Sex: Male

DRUGS (5)
  1. ALCOHOL [Concomitant]
     Dosage: UNK
     Route: 048
  2. NEURONTIN [Concomitant]
     Dosage: UNK
     Route: 065
  3. DHEA [Concomitant]
     Dosage: UNK
     Route: 065
  4. AMBIEN [Suspect]
     Indication: INSOMNIA
     Route: 048
     Dates: start: 20040101, end: 20060301
  5. AMBIEN [Suspect]
     Route: 048
     Dates: start: 20021101, end: 20040101

REACTIONS (9)
  - AGGRESSION [None]
  - AMNESIA [None]
  - ANGER [None]
  - LOSS OF CONSCIOUSNESS [None]
  - MENTAL IMPAIRMENT [None]
  - PHYSICAL ASSAULT [None]
  - SLEEP WALKING [None]
  - SUICIDAL IDEATION [None]
  - THINKING ABNORMAL [None]
